FAERS Safety Report 9405311 (Version 1)
Quarter: 2013Q3

REPORT INFORMATION
  Report Type: Spontaneous
  Country: BR (occurrence: BR)
  Receive Date: 20130717
  Receipt Date: 20130717
  Transmission Date: 20140515
  Serious: Yes (Hospitalization)
  Sender: FDA-Public Use
  Company Number: BR-009507513-1307BRA002827

PATIENT
  Age: 64 Year
  Sex: Female
  Weight: 74 kg

DRUGS (9)
  1. PEG-INTRON [Suspect]
     Indication: HEPATITIS C
     Dosage: 100 MICROGRAM, QW
     Route: 058
     Dates: start: 20121129
  2. VICTRELIS [Suspect]
     Indication: HEPATITIS C
     Dosage: 800 MG, TID
     Route: 048
     Dates: start: 20121229
  3. RIBAVIRIN [Concomitant]
     Indication: HEPATITIS C
     Dosage: 500 MG, QAM
     Route: 048
     Dates: start: 20121129
  4. RIBAVIRIN [Concomitant]
     Dosage: 250 MG, QPM
     Route: 048
     Dates: start: 20121129
  5. ARADOIS H [Concomitant]
     Indication: HYPERTENSION
     Dosage: 1 TABLET, BID
     Dates: start: 2008
  6. PURAN T4 [Concomitant]
     Indication: THYROID DISORDER
     Dosage: 1 TABLET, QAM
     Dates: start: 2009
  7. INSULIN [Concomitant]
     Indication: DIABETES MELLITUS
     Dosage: UNK, BID
     Dates: start: 2009
  8. FOLIC ACID [Concomitant]
     Indication: ANAEMIA PROPHYLAXIS
     Dosage: 5 MG, TID
     Route: 048
     Dates: start: 20121129
  9. EPOETIN [Concomitant]
     Indication: ANAEMIA PROPHYLAXIS
     Dosage: 20 MG, BIW
     Route: 065
     Dates: start: 20121129

REACTIONS (6)
  - Anaemia [Recovering/Resolving]
  - Transfusion [Unknown]
  - Burning sensation [Not Recovered/Not Resolved]
  - Pain in extremity [Not Recovered/Not Resolved]
  - Weight decreased [Not Recovered/Not Resolved]
  - Pruritus [Not Recovered/Not Resolved]
